FAERS Safety Report 24814873 (Version 2)
Quarter: 2025Q1

REPORT INFORMATION
  Report Type: Spontaneous
  Country: TR (occurrence: TR)
  Receive Date: 20250107
  Receipt Date: 20250128
  Transmission Date: 20250408
  Serious: Yes (Hospitalization)
  Sender: SETON PHARMACEUTICALS
  Company Number: TR-SETONPHARMA-2025SETSPO00001

PATIENT
  Age: 41 Year
  Sex: Male
  Weight: 70 kg

DRUGS (12)
  1. PREDNISOLONE [Suspect]
     Active Substance: PREDNISOLONE
     Indication: Takayasu^s arteritis
     Route: 048
     Dates: start: 20230925
  2. UPADACITINIB [Suspect]
     Active Substance: UPADACITINIB
     Indication: Takayasu^s arteritis
     Route: 048
     Dates: start: 20230925, end: 20240505
  3. UPADACITINIB [Suspect]
     Active Substance: UPADACITINIB
     Route: 048
     Dates: start: 20240506, end: 20241218
  4. ASPIRIN [Concomitant]
     Active Substance: ASPIRIN
     Dates: start: 2018
  5. PAROL [Concomitant]
     Active Substance: ACETAMINOPHEN
     Dates: start: 2021
  6. PAROL [Concomitant]
     Active Substance: ACETAMINOPHEN
  7. DRAMAMINE [Concomitant]
     Active Substance: DIMENHYDRINATE
     Dates: start: 20240603
  8. TANTUM [BENZYDAMINE HYDROCHLORIDE] [Concomitant]
     Dates: start: 20241021
  9. AUGMENTIN [Concomitant]
     Active Substance: AMOXICILLIN\CLAVULANATE POTASSIUM
     Indication: Upper respiratory tract infection
     Dates: start: 20241219
  10. AUGMENTIN [Concomitant]
     Active Substance: AMOXICILLIN\CLAVULANATE POTASSIUM
     Indication: Pharyngitis
  11. CLARITHROMYCIN [Concomitant]
     Active Substance: CLARITHROMYCIN
     Indication: Upper respiratory tract infection
     Dates: start: 20241219
  12. CLARITHROMYCIN [Concomitant]
     Active Substance: CLARITHROMYCIN
     Indication: Pharyngitis

REACTIONS (1)
  - Pharyngitis bacterial [Not Recovered/Not Resolved]

NARRATIVE: CASE EVENT DATE: 20241221
